FAERS Safety Report 5921822-1 (Version None)
Quarter: 2008Q4

REPORT INFORMATION
  Report Type: 
  Country: None (occurrence: None)
  Receive Date: 20081017
  Receipt Date: 20081009
  Transmission Date: 20090506
  Serious: Yes (Death)
  Sender: FDA-Public Use
  Company Number: JP-ABBOTT-08P-087-0443378-00

PATIENT
  Age: 81 Year
  Sex: Male
  Weight: 47.9 kg

DRUGS (9)
  1. LEUPROLIDE ACETATE [Suspect]
     Indication: PROSTATE CANCER STAGE IV
     Route: 058
     Dates: start: 20060922, end: 20070824
  2. BICALUTAMIDE [Concomitant]
     Indication: DRUG USE FOR UNKNOWN INDICATION
     Route: 048
     Dates: start: 20060915
  3. VALSARTAN [Concomitant]
     Indication: HYPERTENSION
     Route: 048
  4. NICORANDIL [Concomitant]
     Indication: HYPERTENSION
     Route: 048
  5. NIFEDIPINE [Concomitant]
     Indication: HYPERTENSION
     Route: 048
  6. ACETYLSALICYLIC ACID SRT [Concomitant]
     Indication: CEREBRAL INFARCTION
     Route: 048
  7. MOSAPRIDE CITRATE [Concomitant]
     Indication: CONSTIPATION
     Route: 048
  8. SODIUM ALGINATE [Concomitant]
     Indication: GASTRITIS
     Route: 048
  9. RABEPRAZOLE SODIUM [Concomitant]
     Indication: DRUG USE FOR UNKNOWN INDICATION
     Route: 048

REACTIONS (1)
  - BILE DUCT CANCER [None]
